FAERS Safety Report 10613930 (Version 2)
Quarter: 2015Q1

REPORT INFORMATION
  Report Type: Spontaneous
  Country: US (occurrence: US)
  Receive Date: 20141128
  Receipt Date: 20150211
  Transmission Date: 20150720
  Serious: No
  Sender: FDA-Public Use
  Company Number: US-GLAXOSMITHKLINE-A1078149A

PATIENT

DRUGS (2)
  1. LAMICTAL [Suspect]
     Active Substance: LAMOTRIGINE
     Indication: PRODUCT USED FOR UNKNOWN INDICATION
     Dosage: 200 MG. UNKNOWN DOSING. START DATE: 20MAR2009.150 MG. UNKNOWN DOSING. START DATE: 05MAY2009.
     Route: 065
     Dates: start: 20090320
  2. WELLBUTRIN SR [Suspect]
     Active Substance: BUPROPION HYDROCHLORIDE
     Indication: PRODUCT USED FOR UNKNOWN INDICATION
     Dosage: 150 MG. UNKNOWN DOSING.
     Route: 065
     Dates: start: 20090320

REACTIONS (3)
  - Stress [Unknown]
  - Headache [Unknown]
  - Malaise [Unknown]
